FAERS Safety Report 5141142-5 (Version None)
Quarter: 2006Q4

REPORT INFORMATION
  Report Type: 
  Country: None (occurrence: None)
  Receive Date: 20061101
  Receipt Date: 20061026
  Transmission Date: 20070319
  Serious: Yes (Other)
  Sender: FDA-Public Use
  Company Number: PT-AVENTIS-200621185GDDC

PATIENT
  Age: 33 Year
  Sex: Male

DRUGS (2)
  1. METRONIDAZOLE [Suspect]
     Indication: LIVER ABSCESS
  2. CEFTRIAXONE [Concomitant]
     Indication: LIVER ABSCESS

REACTIONS (4)
  - CEREBELLAR ATAXIA [None]
  - CEREBELLAR SYNDROME [None]
  - NEUROTOXICITY [None]
  - PAIN IN EXTREMITY [None]
